FAERS Safety Report 24938387 (Version 1)
Quarter: 2025Q1

REPORT INFORMATION
  Report Type: Spontaneous
  Country: US (occurrence: US)
  Receive Date: 20250206
  Receipt Date: 20250206
  Transmission Date: 20250409
  Serious: No
  Sender: SANOFI AVENTIS
  Company Number: US-SA-2025SA030566

PATIENT
  Age: 45 Year
  Sex: Female
  Weight: 70.36 kg

DRUGS (7)
  1. KEVZARA [Suspect]
     Active Substance: SARILUMAB
     Indication: Rheumatoid arthritis
     Dosage: 200 MG, QOW
     Route: 058
     Dates: start: 20240223
  2. VITAMIN C [Concomitant]
     Active Substance: ASCORBIC ACID
  3. PROBIOTIC 10 [BIFIDOBACTERIUM BIFIDUM;BIFIDOBACTERIUM LACTIS;LACTIPLAN [Concomitant]
  4. VITAMINS NOS [Concomitant]
     Active Substance: VITAMINS
  5. VITAMIN D2 [Concomitant]
     Active Substance: ERGOCALCIFEROL
  6. PRILOSEC OTC [Concomitant]
     Active Substance: OMEPRAZOLE MAGNESIUM
  7. CELECOXIB [Concomitant]
     Active Substance: CELECOXIB

REACTIONS (1)
  - Intentional dose omission [Unknown]

NARRATIVE: CASE EVENT DATE: 20241201
